FAERS Safety Report 5264812-7 (Version None)
Quarter: 2007Q1

REPORT INFORMATION
  Report Type: 
  Country: None (occurrence: None)
  Receive Date: 20070314
  Receipt Date: 20070312
  Transmission Date: 20070707
  Serious: Yes (Other)
  Sender: FDA-Public Use
  Company Number: BR-GLAXOSMITHKLINE-A0637218A

PATIENT
  Age: 49 Year
  Sex: Male
  Weight: 120 kg

DRUGS (1)
  1. CLAVULIN [Suspect]
     Indication: URINARY TRACT INFECTION
     Dosage: 875MG SINGLE DOSE
     Route: 048
     Dates: start: 20070111, end: 20070111

REACTIONS (5)
  - HYPERHIDROSIS [None]
  - HYPOTENSION [None]
  - OEDEMA [None]
  - PHARMACEUTICAL PRODUCT COMPLAINT [None]
  - URTICARIA [None]
